FAERS Safety Report 6505647-4 (Version None)
Quarter: 2009Q4

REPORT INFORMATION
  Report Type: 
  Country: None (occurrence: None)
  Receive Date: 20091218
  Receipt Date: 20091201
  Transmission Date: 20100525
  Serious: Yes (Hospitalization, Other)
  Sender: FDA-Public Use
  Company Number: BR-SANOFI-AVENTIS-2009SA005699

PATIENT
  Age: 65 Year
  Sex: Female
  Weight: 85 kg

DRUGS (3)
  1. LANTUS [Suspect]
     Indication: TYPE 2 DIABETES MELLITUS
     Route: 058
     Dates: start: 20091001, end: 20091123
  2. LANTUS [Suspect]
     Route: 058
     Dates: start: 20091124, end: 20091130
  3. LANTUS [Suspect]
     Route: 058
     Dates: start: 20090101

REACTIONS (8)
  - ANAEMIA [None]
  - CATARACT [None]
  - DEPRESSION [None]
  - DYSPNOEA [None]
  - EYE HAEMORRHAGE [None]
  - HYPERSOMNIA [None]
  - HYPOGLYCAEMIA [None]
  - SOMNOLENCE [None]
